FAERS Safety Report 6354785-8 (Version None)
Quarter: 2009Q3

REPORT INFORMATION
  Report Type: 
  Country: None (occurrence: None)
  Receive Date: 20090914
  Receipt Date: 20090831
  Transmission Date: 20100115
  Serious: Yes (Other)
  Sender: FDA-Public Use
  Company Number: BR-PFIZER INC-2009261617

PATIENT
  Age: 49 Year

DRUGS (1)
  1. CHAMPIX [Suspect]
     Indication: TOBACCO USER
     Dosage: 0.5 MG, UNK
     Route: 048
     Dates: start: 20090822, end: 20090831

REACTIONS (1)
  - HAEMATOCHEZIA [None]
